FAERS Safety Report 5367678-X (Version None)
Quarter: 2007Q2

REPORT INFORMATION
  Report Type: 
  Country: None (occurrence: None)
  Receive Date: 20070622
  Receipt Date: 20070124
  Transmission Date: 20071010
  Serious: No
  Sender: FDA-Public Use
  Company Number: US-ASTRAZENECA-2007UW01499

PATIENT
  Age: 3 Year

DRUGS (3)
  1. PULMICORT RESPULES [Suspect]
     Route: 055
  2. SINGULAIR [Concomitant]
  3. PREDNISOLONE [Concomitant]
     Route: 048

REACTIONS (2)
  - ABNORMAL BEHAVIOUR [None]
  - MOOD ALTERED [None]
